FAERS Safety Report 8283697-8 (Version None)
Quarter: 2012Q2

REPORT INFORMATION
  Report Type: 
  Country: None (occurrence: None)
  Receive Date: 20120413
  Receipt Date: 20120229
  Transmission Date: 20120825
  Serious: No
  Sender: FDA-Public Use
  Company Number: US-ASTRAZENECA-2010SE59709

PATIENT
  Age: 49 Year
  Sex: Female

DRUGS (3)
  1. NEXIUM [Suspect]
     Route: 048
  2. WELLBUTRIN [Suspect]
     Route: 065
  3. RHINOCORT [Concomitant]

REACTIONS (7)
  - INFLUENZA [None]
  - ABDOMINAL PAIN [None]
  - ADVERSE EVENT [None]
  - GASTROOESOPHAGEAL REFLUX DISEASE [None]
  - OSTEOPENIA [None]
  - SINUS DISORDER [None]
  - BLOOD CHOLESTEROL INCREASED [None]
